FAERS Safety Report 21195289 (Version 1)
Quarter: 2022Q3

REPORT INFORMATION
  Report Type: Spontaneous
  Country: US (occurrence: US)
  Receive Date: 20220810
  Receipt Date: 20220810
  Transmission Date: 20221027
  Serious: Yes (Other)
  Sender: FDA-Public Use
  Company Number: US-SA-SAC20220809000207

PATIENT
  Age: 6 Year
  Sex: Female

DRUGS (1)
  1. DUPIXENT [Suspect]
     Active Substance: DUPILUMAB
     Indication: Dermatitis atopic
     Dosage: 600 MG, 1X
     Route: 058
     Dates: start: 20220726, end: 20220726

REACTIONS (7)
  - Intussusception [Recovering/Resolving]
  - Appendicitis [Unknown]
  - Hypersensitivity [Unknown]
  - Ear swelling [Unknown]
  - Swelling face [Unknown]
  - Lip swelling [Unknown]
  - Asthma [Unknown]
